FAERS Safety Report 18273322 (Version 1)
Quarter: 2020Q3

REPORT INFORMATION
  Report Type: Spontaneous
  Country: US (occurrence: US)
  Receive Date: 20200916
  Receipt Date: 20200916
  Transmission Date: 20201103
  Serious: No
  Sender: FDA-Public Use
  Company Number: US-THERAPEUTICSMD-2020TMD02840

PATIENT
  Age: 68 Year
  Sex: Female
  Weight: 70.3 kg

DRUGS (3)
  1. IMVEXXY [Suspect]
     Active Substance: ESTRADIOL
     Indication: VAGINAL INFECTION
     Dosage: 10 ?G, 1X/DAY AT BEDTIME WHILE SITTING UP
     Route: 067
     Dates: start: 202005
  2. ROSUVASTATIN. [Concomitant]
     Active Substance: ROSUVASTATIN
  3. IMVEXXY [Suspect]
     Active Substance: ESTRADIOL
     Indication: VULVOVAGINAL DRYNESS
     Dosage: 10 ?G, 2X/WEEK AT BEDTIME WHILE SITTING UP
     Route: 067
     Dates: start: 202004, end: 202005

REACTIONS (4)
  - Off label use [Not Recovered/Not Resolved]
  - Headache [Not Recovered/Not Resolved]
  - Dizziness [Not Recovered/Not Resolved]
  - Nausea [Not Recovered/Not Resolved]

NARRATIVE: CASE EVENT DATE: 202004
